FAERS Safety Report 6251515-5 (Version None)
Quarter: 2009Q2

REPORT INFORMATION
  Report Type: 
  Country: None (occurrence: None)
  Receive Date: 20090626
  Receipt Date: 20090626
  Transmission Date: 20091009
  Serious: Yes (Hospitalization)
  Sender: FDA-Public Use
  Company Number: None

PATIENT
  Age: 82 Year
  Sex: Male

DRUGS (10)
  1. LEVETIRACETAM [Suspect]
     Indication: CONVULSION
     Dosage: 500 MG TWICE DAILY
     Dates: start: 20090622, end: 20090623
  2. LEVETIRACETAM [Suspect]
     Indication: TRANSIENT ISCHAEMIC ATTACK
     Dosage: 500 MG TWICE DAILY
     Dates: start: 20090622, end: 20090623
  3. CATAPRES-TTS-1 [Concomitant]
  4. CARDIZEM CD [Concomitant]
  5. MICARDIS [Concomitant]
  6. DARVON-N [Concomitant]
  7. PLAVIX [Concomitant]
  8. AGGRENOX [Concomitant]
  9. ALBUTEROL [Concomitant]
  10. ADVAIR HFA [Concomitant]

REACTIONS (3)
  - CONVULSION [None]
  - PRODUCT SUBSTITUTION ISSUE [None]
  - TRANSIENT ISCHAEMIC ATTACK [None]
